FAERS Safety Report 8949416 (Version 1)
Quarter: 2012Q4

REPORT INFORMATION
  Report Type: 
  Country: US (occurrence: US)
  Receive Date: 20121206
  Receipt Date: 20121206
  Transmission Date: 20130627
  Serious: Yes (Other)
  Sender: FDA-Public Use
  Company Number: US-BAYER-2012-124778

PATIENT
  Age: 58 Year
  Sex: Female

DRUGS (2)
  1. AVELOX [Suspect]
     Indication: ACUTE BRONCHITIS
     Dosage: 400 mg, UNK
  2. MULTIVITAMIN [Concomitant]
     Dosage: 1 DF, QD

REACTIONS (1)
  - Dyskinesia [Recovering/Resolving]
